FAERS Safety Report 13689327 (Version 1)
Quarter: 2017Q2

REPORT INFORMATION
  Report Type: Spontaneous
  Country: US (occurrence: US)
  Receive Date: 20170625
  Receipt Date: 20170625
  Transmission Date: 20170830
  Serious: Yes (Other)
  Sender: FDA-Public Use
  Company Number: None

PATIENT
  Age: 55 Year
  Sex: Male
  Weight: 67.05 kg

DRUGS (4)
  1. CIPROFLOXACIN. [Suspect]
     Active Substance: CIPROFLOXACIN
     Indication: PRODUCT USED FOR UNKNOWN INDICATION
     Dosage: ?          OTHER STRENGTH:MG;QUANTITY:20 TABLET(S);?
     Route: 048
  2. VALERIANA [Concomitant]
     Active Substance: VALERIAN
  3. OMEGA 3 [Concomitant]
     Active Substance: OMEGA-3 FATTY ACIDS
  4. VITAMINS [Concomitant]
     Active Substance: VITAMINS

REACTIONS (10)
  - Burning sensation [None]
  - Arthralgia [None]
  - Insomnia [None]
  - Back pain [None]
  - Tinnitus [None]
  - Fatigue [None]
  - Diarrhoea [None]
  - Asthenia [None]
  - Disorientation [None]
  - Hypoaesthesia [None]

NARRATIVE: CASE EVENT DATE: 20170106
